FAERS Safety Report 16631105 (Version 2)
Quarter: 2019Q3

REPORT INFORMATION
  Report Type: Spontaneous
  Country: FR (occurrence: FR)
  Receive Date: 20190725
  Receipt Date: 20190820
  Transmission Date: 20191004
  Serious: Yes (Other)
  Sender: FDA-Public Use
  Company Number: FR-NOVOPROD-673560

PATIENT
  Age: 46 Year
  Sex: Female

DRUGS (33)
  1. HYDROCORTISONE UPJOHN [Suspect]
     Active Substance: HYDROCORTISONE
     Indication: ADRENAL INSUFFICIENCY
     Dosage: 200 MG, QD
     Route: 042
     Dates: start: 20190509, end: 20190514
  2. DOLIPRANE [Suspect]
     Active Substance: ACETAMINOPHEN
     Indication: PYREXIA
     Dosage: 4 G, QD
     Route: 048
     Dates: start: 20190522
  3. SPASFON [PHLOROGLUCINOL;TRIMETHYLPHLOROGLUCINOL] [Suspect]
     Active Substance: PHLOROGLUCINOL\1,3,5-TRIMETHOXYBENZENE
     Indication: PAIN
     Dosage: 1DF,UNE AMPOULE(A VIAL)
     Route: 042
     Dates: start: 20190509, end: 20190509
  4. ATARAX [Suspect]
     Active Substance: HYDROXYZINE HYDROCHLORIDE
     Indication: ANXIETY
     Dosage: 25 MG, QD
     Route: 048
     Dates: start: 201905, end: 20190603
  5. NOVORAPID [Suspect]
     Active Substance: INSULIN ASPART
     Indication: DIABETES MELLITUS
     Dosage: 25 IU, QD
     Route: 042
     Dates: start: 20190509, end: 20190521
  6. SUFENTANIL [Suspect]
     Active Substance: SUFENTANIL
     Indication: SEDATION
     Dosage: 750 ?G, QD
     Route: 042
     Dates: start: 20190509, end: 20190512
  7. FLUCORTAC [Suspect]
     Active Substance: FLUDROCORTISONE ACETATE
     Indication: ADRENAL INSUFFICIENCY
     Dosage: 50 ?G, QD
     Route: 048
     Dates: start: 20190509, end: 20190514
  8. MORPHINE RENAUDIN [Suspect]
     Active Substance: MORPHINE
     Indication: PAIN
     Dosage: 6 MG
     Route: 042
     Dates: start: 20190518, end: 20190518
  9. NORADRENALINE MYLAN [Suspect]
     Active Substance: NOREPINEPHRINE\NOREPINEPHRINE BITARTRATE
     Indication: HAEMODYNAMIC INSTABILITY
     Dosage: 24 MG, QD
     Route: 042
     Dates: start: 20190509, end: 20190512
  10. PROPOFOL LIPURO [Suspect]
     Active Substance: PROPOFOL
     Indication: SEDATION
     Dosage: 1 G, QD
     Route: 042
     Dates: start: 20190512, end: 20190516
  11. ROVAMYCINE [SPIRAMYCIN] [Suspect]
     Active Substance: SPIRAMYCIN
     Indication: FEBRILE BONE MARROW APLASIA
     Dosage: 9 MIU, QD
     Route: 048
     Dates: start: 20190507, end: 20190516
  12. TIORFAN [Suspect]
     Active Substance: RACECADOTRIL
     Indication: DIARRHOEA
     Dosage: 300 MG, QD
     Route: 048
     Dates: start: 20190510, end: 20190511
  13. TIORFAN [Suspect]
     Active Substance: RACECADOTRIL
     Dosage: SI BESOIN (AS NEEDED)
     Route: 048
     Dates: start: 20190522
  14. HEPARINE SODIUM PANPHARMA [Suspect]
     Active Substance: HEPARIN SODIUM
     Indication: THROMBOSIS
     Dosage: PUIS 10000 UI/JOUR
     Route: 042
     Dates: start: 20190510, end: 20190514
  15. HYPNOVEL [MIDAZOLAM HYDROCHLORIDE] [Suspect]
     Active Substance: MIDAZOLAM HYDROCHLORIDE
     Indication: SEDATION
     Dosage: 50 MG, QD
     Route: 042
     Dates: start: 20190509, end: 20190511
  16. LANSOPRAZOLE ARROW [Suspect]
     Active Substance: LANSOPRAZOLE
     Indication: PEPTIC ULCER
     Dosage: 60 MG, QD
     Route: 048
     Dates: start: 20190522, end: 20190603
  17. CIFLOX [CIPROFLOXACIN HYDROCHLORIDE] [Suspect]
     Active Substance: CIPROFLOXACIN HYDROCHLORIDE
     Indication: FEBRILE BONE MARROW APLASIA
     Dosage: 800 MG, QD
     Route: 042
     Dates: start: 20190507, end: 20190508
  18. PARACETAMOL B BRAUN [Suspect]
     Active Substance: ACETAMINOPHEN
     Indication: PYREXIA
     Dosage: 4 G, QD
     Route: 042
     Dates: start: 20190509, end: 20190511
  19. PANTOPRAZOLE SODIUM. [Suspect]
     Active Substance: PANTOPRAZOLE SODIUM
     Indication: GASTRIC MUCOSAL LESION
     Dosage: 80 MG, QD
     Route: 042
     Dates: start: 20190509, end: 20190520
  20. HEPARINE SODIUM PANPHARMA [Suspect]
     Active Substance: HEPARIN SODIUM
     Dosage: 1000 IU, QD
     Route: 042
  21. ESMERON [Suspect]
     Active Substance: ROCURONIUM BROMIDE
     Indication: ENDOTRACHEAL INTUBATION
     Dosage: 80 MG
     Route: 042
     Dates: start: 20190509, end: 20190509
  22. TAZOCILLINE [Suspect]
     Active Substance: PIPERACILLIN SODIUM\TAZOBACTAM SODIUM
     Indication: FEBRILE BONE MARROW APLASIA
     Dosage: 12 G, QD
     Route: 042
     Dates: start: 20190507, end: 20190516
  23. PANTOPRAZOLE [Suspect]
     Active Substance: PANTOPRAZOLE
     Indication: PROPHYLAXIS AGAINST GASTROINTESTINAL ULCER
     Dosage: 80 MG, QD
     Route: 048
     Dates: start: 20190522
  24. NIMBEX [Suspect]
     Active Substance: CISATRACURIUM BESYLATE
     Indication: SEDATION
     Dosage: 120 MG, QD
     Route: 042
     Dates: start: 20190509, end: 20190511
  25. EFFERALGAN COD. [Suspect]
     Active Substance: ACETAMINOPHEN\CODEINE PHOSPHATE
     Indication: PYREXIA
     Dosage: 4 G, QD
     Route: 048
     Dates: start: 20190511, end: 20190522
  26. SMECTA [Suspect]
     Active Substance: MONTMORILLONITE
     Indication: DIARRHOEA
     Dosage: 1 DF ( AS NEEDED)
     Route: 048
     Dates: start: 20190522, end: 20190603
  27. KETAMINE RENAUDIN [Suspect]
     Active Substance: KETAMINE
     Indication: ANAESTHESIA
     Dosage: 250 MG
     Route: 042
     Dates: start: 20190509, end: 20190509
  28. VANCOMYCINE SANDOZ [Suspect]
     Active Substance: VANCOMYCIN
     Indication: FEBRILE BONE MARROW APLASIA
     Dosage: 1020 MG, QD
     Route: 042
     Dates: start: 20190507, end: 20190511
  29. LASILIX [FUROSEMIDE] [Suspect]
     Active Substance: FUROSEMIDE
     Indication: OEDEMA
     Dosage: 80 MG
     Route: 042
     Dates: start: 20190518, end: 20190518
  30. LOVENOX [Suspect]
     Active Substance: ENOXAPARIN SODIUM
     Indication: PROPHYLAXIS
     Dosage: 4000 IU, QD
     Route: 058
     Dates: start: 20190522, end: 20190607
  31. SPECIAFOLDINE [Suspect]
     Active Substance: FOLIC ACID
     Indication: ANAEMIA
     Dosage: 5 MG, QD
     Route: 048
     Dates: start: 20190520
  32. CIRCADIN [Suspect]
     Active Substance: MELATONIN
     Indication: INSOMNIA
     Dosage: 2 MG, QD
     Route: 048
     Dates: start: 20190522
  33. NORADRENALINE MYLAN [Suspect]
     Active Substance: NOREPINEPHRINE\NOREPINEPHRINE BITARTRATE
     Dosage: 8 MG, QD
     Route: 042

REACTIONS (1)
  - Rash maculo-papular [Recovered/Resolved]

NARRATIVE: CASE EVENT DATE: 20190528
